FAERS Safety Report 14211329 (Version 1)
Quarter: 2017Q4

REPORT INFORMATION
  Report Type: Report from Study
  Country: CA (occurrence: CA)
  Receive Date: 20171121
  Receipt Date: 20171121
  Transmission Date: 20180321
  Serious: Yes (Other)
  Sender: FDA-Public Use
  Company Number: CA-HLSUS-2017-CA-001186

PATIENT
  Age: 27 Year
  Sex: Male

DRUGS (10)
  1. CLOZARIL [Suspect]
     Active Substance: CLOZAPINE
     Dosage: 200 MG DAILY
     Route: 048
     Dates: start: 20161222
  2. RUB A535 [Concomitant]
     Dosage: AS NEEDED
     Route: 061
  3. FLUPHENAZINE [Concomitant]
     Active Substance: FLUPHENAZINE
     Dosage: 5 MG EVERY 2 HOURS AS NEEDED
     Route: 048
  4. LITHIUM. [Concomitant]
     Active Substance: LITHIUM
     Dosage: 1650MG DAILY BED TIME
  5. ACETAMINOPHEN. [Concomitant]
     Active Substance: ACETAMINOPHEN
     Dosage: 975 MG THREE TIMES A DAY AS NEEDED
  6. MYOFLEX CREAM [Concomitant]
     Dosage: AS NEEDED
  7. ARIPIPRAZOLE. [Concomitant]
     Active Substance: ARIPIPRAZOLE
     Dosage: 40 MG (DOSE INCREASED IN 20-SEP-2017)
  8. HALOPERIDOL. [Concomitant]
     Active Substance: HALOPERIDOL
     Dosage: 10 MG (DAILY AT 10 AM AND 4 PM) AND ALONG WITH LORAZEPAM 1MG TWICE DAILY
  9. BENZTROPINE [Concomitant]
     Active Substance: BENZTROPINE
     Dosage: 2 MG TWICE DAILY AS NEEDED (OCCASIONAL USE)
  10. LORAZEPAM. [Concomitant]
     Active Substance: LORAZEPAM
     Dosage: 2 MG DAILY AT 10 AM AND 4PM

REACTIONS (6)
  - Agitation [Unknown]
  - Dyslipidaemia [Unknown]
  - Blood pressure increased [Unknown]
  - Tachycardia [Unknown]
  - Electrocardiogram ST segment elevation [Unknown]
  - Salivary hypersecretion [Unknown]

NARRATIVE: CASE EVENT DATE: 20170925
